FAERS Safety Report 25763743 (Version 1)
Quarter: 2025Q3

REPORT INFORMATION
  Report Type: Spontaneous
  Country: US (occurrence: US)
  Receive Date: 20250905
  Receipt Date: 20250905
  Transmission Date: 20251021
  Serious: No
  Sender: DOMPE FARMACEUTICI
  Company Number: US-FARMAPROD-202411-4076

PATIENT
  Sex: Female

DRUGS (11)
  1. OXERVATE [Suspect]
     Active Substance: CENEGERMIN-BKBJ
     Indication: Neurotrophic keratopathy
     Route: 047
     Dates: start: 20241002
  2. OXERVATE [Suspect]
     Active Substance: CENEGERMIN-BKBJ
     Indication: Hypoaesthesia eye
  3. GLUCOSAMINE-CHONDROITIN-D3 [Concomitant]
  4. CRANBERRY-PROBIOTIC [Concomitant]
  5. FISH OIL [Concomitant]
     Active Substance: FISH OIL
  6. CALCIUM\VITAMIN D [Concomitant]
     Active Substance: CALCIUM\VITAMIN D
  7. ROSUVASTATIN CALCIUM [Concomitant]
     Active Substance: ROSUVASTATIN CALCIUM
  8. RETAINE PM [Concomitant]
     Active Substance: MINERAL OIL\PETROLATUM
  9. SYSTANE (HYPROMELLOSE 2910 (4000 MPA.S)) [Concomitant]
     Active Substance: HYPROMELLOSE 2910 (4000 MPA.S)
  10. OFLOXACIN [Concomitant]
     Active Substance: OFLOXACIN
  11. ARTIFICIAL TEARS [Concomitant]

REACTIONS (2)
  - Eye pain [Not Recovered/Not Resolved]
  - Drug ineffective [Unknown]
